FAERS Safety Report 12592585 (Version 1)
Quarter: 2016Q3

REPORT INFORMATION
  Report Type: Spontaneous
  Country: US (occurrence: US)
  Receive Date: 20160726
  Receipt Date: 20160726
  Transmission Date: 20161109
  Serious: No
  Sender: FDA-Public Use
  Company Number: US-BRISTOL-MYERS SQUIBB COMPANY-BMS-2016-059995

PATIENT
  Sex: Male

DRUGS (2)
  1. YERVOY [Suspect]
     Active Substance: IPILIMUMAB
     Indication: MALIGNANT MELANOMA
     Dosage: 10 MG/KG, 800 MG
     Route: 065
  2. YERVOY [Suspect]
     Active Substance: IPILIMUMAB
     Dosage: 10 MG/KG, UNK
     Route: 065

REACTIONS (2)
  - Off label use [Unknown]
  - Malaise [Unknown]
